FAERS Safety Report 14948950 (Version 1)
Quarter: 2018Q2

REPORT INFORMATION
  Report Type: Spontaneous
  Country: US (occurrence: US)
  Receive Date: 20180529
  Receipt Date: 20180529
  Transmission Date: 20180711
  Serious: No
  Sender: FDA-Public Use
  Company Number: US-GLAXOSMITHKLINE-US2018091024

PATIENT
  Sex: Female

DRUGS (1)
  1. ABREVA [Suspect]
     Active Substance: DOCOSANOL
     Indication: ORAL HERPES
     Dosage: UNK
     Dates: start: 201804

REACTIONS (8)
  - Ill-defined disorder [Unknown]
  - Condition aggravated [Unknown]
  - Blister [Unknown]
  - Drug ineffective [Unknown]
  - Muscle tightness [Unknown]
  - Application site pain [Unknown]
  - Scab [Unknown]
  - Oral herpes [Unknown]
